FAERS Safety Report 25152927 (Version 2)
Quarter: 2025Q3

REPORT INFORMATION
  Report Type: Spontaneous
  Country: US (occurrence: US)
  Receive Date: 20250403
  Receipt Date: 20250701
  Transmission Date: 20251020
  Serious: Yes (Other)
  Sender: NOVO NORDISK
  Company Number: US-NOVOPROD-1399408

PATIENT
  Age: 56 Year
  Sex: Female

DRUGS (3)
  1. NOVOLOG [Suspect]
     Active Substance: INSULIN ASPART
     Indication: Type 1 diabetes mellitus
     Route: 058
     Dates: start: 2020
  2. TRESIBA [Suspect]
     Active Substance: INSULIN DEGLUDEC
  3. TRESIBA [Suspect]
     Active Substance: INSULIN DEGLUDEC
     Indication: Type 1 diabetes mellitus

REACTIONS (2)
  - Cataract operation [Recovered/Resolved]
  - Corrective lens user [Unknown]

NARRATIVE: CASE EVENT DATE: 20200101
